FAERS Safety Report 8928817 (Version 2)
Quarter: 2013Q1

REPORT INFORMATION
  Report Type: Spontaneous
  Country: US (occurrence: US)
  Receive Date: 20121128
  Receipt Date: 20130218
  Transmission Date: 20140127
  Serious: No
  Sender: FDA-Public Use
  Company Number: US-PFIZER INC-2012295666

PATIENT
  Sex: Female

DRUGS (1)
  1. ADVIL [Suspect]
     Indication: BACK PAIN
     Dosage: 200 MG, ONCE A DAY
     Route: 048
     Dates: start: 20121125, end: 20121125

REACTIONS (4)
  - Wrong technique in drug usage process [Unknown]
  - Throat irritation [Not Recovered/Not Resolved]
  - Thermal burn [Unknown]
  - Product label issue [Unknown]
